FAERS Safety Report 8539552-9 (Version None)
Quarter: 2012Q3

REPORT INFORMATION
  Report Type: 
  Country: None (occurrence: None)
  Receive Date: 20120726
  Receipt Date: 20120712
  Transmission Date: 20120928
  Serious: Yes (Death)
  Sender: FDA-Public Use
  Company Number: SE-ELI_LILLY_AND_COMPANY-SE201207003840

PATIENT
  Age: 68 Year
  Sex: Male

DRUGS (2)
  1. LITHIUM CARBONATE [Concomitant]
  2. ZYPREXA [Suspect]
     Indication: BIPOLAR DISORDER
     Dosage: 1 DF, UNK

REACTIONS (1)
  - DROWNING [None]
